FAERS Safety Report 4737167-1 (Version None)
Quarter: 2005Q3

REPORT INFORMATION
  Report Type: 
  Country: None (occurrence: None)
  Receive Date: 20050808
  Receipt Date: 20050803
  Transmission Date: 20060218
  Serious: Yes (Death, Other)
  Sender: FDA-Public Use
  Company Number: PHBS2005US11257

PATIENT
  Age: 25 Year
  Sex: Female

DRUGS (1)
  1. THIORIDAZINE [Suspect]
     Dosage: 400 MG/D
     Route: 065

REACTIONS (2)
  - DEPRESSION [None]
  - SUDDEN DEATH [None]
